FAERS Safety Report 17070212 (Version 1)
Quarter: 2019Q4

REPORT INFORMATION
  Report Type: Spontaneous
  Country: GB (occurrence: PT)
  Receive Date: 20191125
  Receipt Date: 20191125
  Transmission Date: 20200122
  Serious: Yes (Other)
  Sender: FDA-Public Use
  Company Number: PT-BAYER-2019-212174

PATIENT
  Age: 83 Year
  Sex: Male

DRUGS (1)
  1. ULTRAVIST [Suspect]
     Active Substance: IOPROMIDE
     Indication: DIAGNOSTIC PROCEDURE
     Dosage: 1 DF, UNK
     Route: 042
     Dates: start: 20191028, end: 20191028

REACTIONS (4)
  - Pruritus [Recovered/Resolved]
  - Periorbital oedema [Recovered/Resolved]
  - Dysphonia [Recovered/Resolved]
  - Hyperhidrosis [Recovered/Resolved]

NARRATIVE: CASE EVENT DATE: 20191028
